FAERS Safety Report 13268171 (Version 1)
Quarter: 2017Q1

REPORT INFORMATION
  Report Type: Report from Study
  Country: IT (occurrence: IT)
  Receive Date: 20170224
  Receipt Date: 20170224
  Transmission Date: 20170428
  Serious: Yes (Hospitalization)
  Sender: FDA-Public Use
  Company Number: IT-TEVA-742596ACC

PATIENT
  Age: 92 Year
  Sex: Male

DRUGS (4)
  1. RIVOTRIL [Concomitant]
     Active Substance: CLONAZEPAM
     Indication: CEREBROVASCULAR DISORDER
     Dates: start: 20120305, end: 20161026
  2. QUETIAPINA TEVA - 25 MG COMPRESSE RIVESTITE CON FILM [Suspect]
     Active Substance: QUETIAPINE
     Indication: COGNITIVE DISORDER
     Route: 048
     Dates: start: 20161024, end: 20161024
  3. QUETIAPINA TEVA - 25 MG COMPRESSE RIVESTITE CON FILM [Suspect]
     Active Substance: QUETIAPINE
     Indication: COGNITIVE DISORDER
     Route: 048
     Dates: start: 20161025, end: 20161026
  4. HALDOL - 2MG/ML GOCCE ORALI, SOLUZIONE [Concomitant]
     Indication: COGNITIVE DISORDER
     Dates: start: 20160730, end: 20161023

REACTIONS (7)
  - Agitation [Recovering/Resolving]
  - Asthenia [Recovering/Resolving]
  - Rabies [Recovering/Resolving]
  - Product use issue [Unknown]
  - Somnolence [Recovering/Resolving]
  - Abasia [Recovering/Resolving]
  - Speech disorder [Recovering/Resolving]

NARRATIVE: CASE EVENT DATE: 20161025
